FAERS Safety Report 4609391-X (Version None)
Quarter: 2005Q1

REPORT INFORMATION
  Report Type: 
  Country: None (occurrence: None)
  Receive Date: 20050314
  Receipt Date: 20050301
  Transmission Date: 20050727
  Serious: Yes (Other)
  Sender: FDA-Public Use
  Company Number: 2005039342

PATIENT
  Sex: Female

DRUGS (5)
  1. ALPRESS  (PRAZOSIN) [Suspect]
     Indication: HYPERTENSION
     Dosage: 10 MG (5 MG, 2 IN 24 HR)
     Dates: start: 20050228
  2. VERAPAMIL HCL [Concomitant]
  3. POTASSIUM CHLORIDE [Concomitant]
  4. BROMAZEPAM (BROMAZEPAM) [Concomitant]
  5. ZOLPIDEM TARTRATE [Concomitant]

REACTIONS (3)
  - FEELING ABNORMAL [None]
  - MUSCLE CONTRACTIONS INVOLUNTARY [None]
  - PALPITATIONS [None]
